FAERS Safety Report 20305868 (Version 2)
Quarter: 2022Q2

REPORT INFORMATION
  Report Type: Spontaneous
  Country: US (occurrence: US)
  Receive Date: 20220106
  Receipt Date: 20220419
  Transmission Date: 20220721
  Serious: No
  Sender: FDA-Public Use
  Company Number: US-PFIZER INC-202101367335

PATIENT
  Age: 51 Year
  Sex: Female

DRUGS (2)
  1. IBRANCE [Suspect]
     Active Substance: PALBOCICLIB
     Indication: Oestrogen receptor assay positive
     Dosage: 125 MG
     Dates: start: 20200521, end: 20220126
  2. IBRANCE [Suspect]
     Active Substance: PALBOCICLIB
     Indication: Breast cancer female

REACTIONS (5)
  - Product dose omission issue [Unknown]
  - Decreased appetite [Unknown]
  - Dry skin [Unknown]
  - Stomatitis [Unknown]
  - Neoplasm progression [Unknown]
